FAERS Safety Report 8569435-X (Version None)
Quarter: 2012Q3

REPORT INFORMATION
  Report Type: 
  Country: None (occurrence: None)
  Receive Date: 20120803
  Receipt Date: 20120717
  Transmission Date: 20120928
  Serious: Yes (Hospitalization)
  Sender: FDA-Public Use
  Company Number: JP-GILEAD-2012-0058759

PATIENT
  Sex: Female

DRUGS (24)
  1. MUCODYNE [Concomitant]
     Indication: COUGH
     Route: 048
     Dates: start: 20110117, end: 20110130
  2. AMBRISENTAN [Suspect]
     Dosage: 5 MG, QD
     Route: 048
     Dates: start: 20101214, end: 20110108
  3. FLOLAN [Suspect]
     Dosage: 30 NG/KG/MIN
     Route: 042
     Dates: start: 20110205, end: 20110210
  4. FLOLAN [Suspect]
     Dosage: 10 NG/KG/MIN
     Route: 042
     Dates: start: 20101230, end: 20110120
  5. FLOLAN [Suspect]
     Dosage: 0.6 NG/KG/MIN
     Route: 042
     Dates: start: 20101211, end: 20101212
  6. ENTOMOL [Concomitant]
     Indication: DIARRHOEA
     Route: 048
     Dates: start: 20110127
  7. GASTER                             /00706001/ [Concomitant]
     Indication: PROPHYLAXIS AGAINST GASTROINTESTINAL ULCER
     Dosage: UNK
     Route: 048
     Dates: start: 20101217
  8. HEPARIN [Concomitant]
     Indication: THROMBOSIS PROPHYLAXIS
     Route: 042
     Dates: start: 20101211, end: 20110114
  9. FLOLAN [Suspect]
     Dosage: 7 NG/KG/MIN
     Route: 042
     Dates: start: 20101220, end: 20101230
  10. FLOLAN [Suspect]
     Dosage: 5 NG/KG/MIN
     Route: 042
     Dates: start: 20101216, end: 20101220
  11. DEPAS [Concomitant]
     Indication: PROPHYLAXIS
  12. AMBRISENTAN [Suspect]
     Indication: PULMONARY ARTERIAL HYPERTENSION
     Dosage: 7.5 UNK, UNK
     Route: 048
     Dates: start: 20110109
  13. ENTOMOL [Concomitant]
     Indication: PROPHYLAXIS AGAINST DIARRHOEA
     Route: 048
     Dates: start: 20110127, end: 20110812
  14. ALENDRONATE SODIUM [Concomitant]
     Indication: OSTEOPOROSIS PROPHYLAXIS
     Route: 048
     Dates: start: 20110224
  15. ADCIRCA [Suspect]
     Indication: PULMONARY ARTERIAL HYPERTENSION
     Dosage: UNK
     Route: 048
     Dates: start: 20101224
  16. DEPAS [Concomitant]
     Indication: ANXIETY
     Route: 048
     Dates: start: 20101223
  17. MEDICON                            /00048102/ [Concomitant]
     Indication: COUGH
     Route: 048
     Dates: start: 20110117, end: 20110130
  18. SULFAMETHOXAZOLE AND TRIMETHOPRIM [Concomitant]
     Indication: INFECTION PROPHYLAXIS
     Route: 048
     Dates: start: 20110224
  19. FLOLAN [Suspect]
     Dosage: 3 NG/KG/MIN
     Route: 042
     Dates: start: 20101212, end: 20101216
  20. GASTER                             /00706001/ [Concomitant]
     Dosage: UNK
     Route: 042
     Dates: start: 20101213, end: 20101216
  21. FLOLAN [Suspect]
     Indication: PULMONARY ARTERIAL HYPERTENSION
     Dosage: 32 NG/KG/MIN
     Route: 042
     Dates: start: 20110210
  22. FLOLAN [Suspect]
     Dosage: 28 NG/KG/MIN
     Route: 042
     Dates: start: 20110204, end: 20110205
  23. FLOLAN [Suspect]
     Dosage: 20 NG/KG/MIN
     Route: 042
     Dates: start: 20110120, end: 20110204
  24. WARFARIN SODIUM [Concomitant]
     Route: 048
     Dates: start: 20101224, end: 20110124

REACTIONS (1)
  - PNEUMONIA [None]
